FAERS Safety Report 5333493-6 (Version None)
Quarter: 2007Q2

REPORT INFORMATION
  Report Type: 
  Country: None (occurrence: None)
  Receive Date: 20070308
  Receipt Date: 20061206
  Transmission Date: 20071010
  Serious: No
  Sender: FDA-Public Use
  Company Number: 2006-BP-13591PF

PATIENT
  Age: 81 Year
  Sex: Female
  Weight: 69.85 kg

DRUGS (7)
  1. SPIRIVA [Suspect]
     Indication: CHRONIC OBSTRUCTIVE PULMONARY DISEASE
     Dosage: 18 MCG ( 18 MCG, 1 PUFF QD) IH
     Route: 055
     Dates: start: 20061025, end: 20061118
  2. LIPITOR [Concomitant]
  3. FUROSEMIDE [Concomitant]
  4. XOPENEX [Concomitant]
  5. ADVAIR DISKUS 100/50 [Concomitant]
  6. ALBUTEROL [Concomitant]
  7. ALPRAZOLAM [Concomitant]

REACTIONS (2)
  - DYSPNOEA [None]
  - VISION BLURRED [None]
